FAERS Safety Report 19459077 (Version 1)
Quarter: 2021Q2

REPORT INFORMATION
  Report Type: Spontaneous
  Country: US (occurrence: US)
  Receive Date: 20210624
  Receipt Date: 20210624
  Transmission Date: 20210717
  Serious: No
  Sender: FDA-Public Use
  Company Number: None

PATIENT
  Age: 27 Year
  Sex: Female
  Weight: 99 kg

DRUGS (1)
  1. ORGANIC GOLD FACE CREME [Suspect]
     Active Substance: CANNABIS SATIVA SEED OIL\HERBALS
     Dates: start: 20210601, end: 20210624

REACTIONS (1)
  - Product contamination microbial [None]

NARRATIVE: CASE EVENT DATE: 20210624
